FAERS Safety Report 25773116 (Version 2)
Quarter: 2025Q3

REPORT INFORMATION
  Report Type: Spontaneous
  Country: US (occurrence: US)
  Receive Date: 20250908
  Receipt Date: 20250921
  Transmission Date: 20251021
  Serious: Yes (Other)
  Sender: TEVA
  Company Number: US-TEVA-VS-3368603

PATIENT
  Age: 76 Year
  Sex: Male

DRUGS (6)
  1. FLUOCINONIDE [Suspect]
     Active Substance: FLUOCINONIDE
     Indication: Eczema
     Route: 065
  2. NEMOLIZUMAB [Suspect]
     Active Substance: NEMOLIZUMAB
     Indication: Dermatitis atopic
     Route: 065
  3. NEMOLIZUMAB [Suspect]
     Active Substance: NEMOLIZUMAB
     Indication: Dermatitis atopic
     Route: 065
  4. METHYLPREDNISOLONE [Concomitant]
     Active Substance: METHYLPREDNISOLONE
     Indication: Eczema
     Route: 065
  5. TRIAMCINOLONE ACETONIDE [Suspect]
     Active Substance: TRIAMCINOLONE ACETONIDE
     Indication: Eczema
     Route: 030
  6. DUPILUMAB [Suspect]
     Active Substance: DUPILUMAB
     Indication: Eczema
     Route: 065

REACTIONS (2)
  - Drug ineffective [Unknown]
  - Acute generalised exanthematous pustulosis [Recovering/Resolving]
